FAERS Safety Report 15079953 (Version 1)
Quarter: 2018Q2

REPORT INFORMATION
  Report Type: Spontaneous
  Country: GB (occurrence: GB)
  Receive Date: 20180627
  Receipt Date: 20180627
  Transmission Date: 20180711
  Serious: Yes (Death, Other)
  Sender: FDA-Public Use
  Company Number: GB-ALLERGAN-1832417US

PATIENT
  Age: 62 Year
  Sex: Male

DRUGS (17)
  1. VALACICLOVIR [Concomitant]
     Active Substance: VALACYCLOVIR HYDROCHLORIDE
  2. URSODEOXYCHOLIC ACID [Concomitant]
     Active Substance: URSODIOL
  3. PARACETAMOL [Concomitant]
     Active Substance: ACETAMINOPHEN
  4. COLISTIN [Concomitant]
     Active Substance: COLISTIN
  5. NOREPINEPHRINE. [Concomitant]
     Active Substance: NOREPINEPHRINE
  6. AMBISOME [Concomitant]
     Active Substance: AMPHOTERICIN B
  7. CEFTAZIDIME;AVIBACTAM - BP [Suspect]
     Active Substance: AVIBACTAM SODIUM\CEFTAZIDIME
     Indication: PRODUCT USED FOR UNKNOWN INDICATION
     Dosage: 2.5 G, UNK
     Route: 042
     Dates: start: 20180508
  8. FUROSEMIDE. [Concomitant]
     Active Substance: FUROSEMIDE
  9. DIGOXIN. [Concomitant]
     Active Substance: DIGOXIN
  10. HYPROMELLOSE [Concomitant]
     Active Substance: HYPROMELLOSES
  11. CHLORHEXIDINE GLUCONATE. [Concomitant]
     Active Substance: CHLORHEXIDINE GLUCONATE
  12. PEGFILGRASTIM [Concomitant]
     Active Substance: PEGFILGRASTIM
  13. TIGECYCLINE. [Concomitant]
     Active Substance: TIGECYCLINE
  14. CASSIA ANGUSTIFOLIA [Concomitant]
     Active Substance: SENNA LEAF
  15. METRONIDAZOLE. [Concomitant]
     Active Substance: METRONIDAZOLE
  16. LANSOPRAZOLE. [Concomitant]
     Active Substance: LANSOPRAZOLE
  17. BISOPROLOL [Concomitant]
     Active Substance: BISOPROLOL

REACTIONS (1)
  - Death [Fatal]
